FAERS Safety Report 8253937-X (Version None)
Quarter: 2012Q2

REPORT INFORMATION
  Report Type: 
  Country: None (occurrence: None)
  Receive Date: 20120402
  Receipt Date: 20120316
  Transmission Date: 20120825
  Serious: No
  Sender: FDA-Public Use
  Company Number: US-AMGEN-USASP2012017310

PATIENT
  Age: 33 Year
  Sex: Male

DRUGS (3)
  1. VITAMIN B-12 [Concomitant]
     Dosage: UNK
  2. ENBREL [Suspect]
     Indication: PSORIATIC ARTHROPATHY
     Dosage: 50 MG, 2 TIMES/WK
     Dates: start: 20110501
  3. NASONEX [Concomitant]
     Dosage: UNK

REACTIONS (2)
  - VIRAL INFECTION [None]
  - HYPERSENSITIVITY [None]
